FAERS Safety Report 10398838 (Version 2)
Quarter: 2014Q3

REPORT INFORMATION
  Report Type: Spontaneous
  Country: US (occurrence: US)
  Receive Date: 20140821
  Receipt Date: 20140821
  Transmission Date: 20150326
  Serious: Yes (Death, Hospitalization)
  Sender: FDA-Public Use
  Company Number: US-SA-2014SA110122

PATIENT
  Age: 74 Year
  Sex: Male
  Weight: 80.4 kg

DRUGS (16)
  1. AFLIBERCEPT [Suspect]
     Active Substance: AFLIBERCEPT
     Indication: OESOPHAGEAL ADENOCARCINOMA
     Route: 042
     Dates: start: 20140714, end: 20140714
  2. ASPIRIN. [Concomitant]
     Active Substance: ASPIRIN
  3. CIPROFLOXACIN. [Concomitant]
     Active Substance: CIPROFLOXACIN
     Indication: NEUTROPENIA
  4. DIPHENOXYLATE W/ATROPINE SULFATE [Concomitant]
     Active Substance: ATROPINE SULFATE\DIPHENOXYLATE
  5. ONDANSETRON HYDROCHLORIDE. [Concomitant]
     Active Substance: ONDANSETRON HYDROCHLORIDE
  6. AFLIBERCEPT [Suspect]
     Active Substance: AFLIBERCEPT
     Indication: OESOPHAGEAL ADENOCARCINOMA
     Route: 042
     Dates: start: 20140728, end: 20140728
  7. LOSARTAN [Concomitant]
     Active Substance: LOSARTAN
  8. MAALOX ANTACID [Concomitant]
     Active Substance: ALUMINUM HYDROXIDE\DIMETHICONE\MAGNESIUM HYDROXIDE
  9. POTASSIUM PHOSPHATE MONOBASIC/SODIUM PHOSPHATE [Concomitant]
     Active Substance: POTASSIUM PHOSPHATE\SODIUM PHOSPHATE
  10. SIMVASTATIN. [Concomitant]
     Active Substance: SIMVASTATIN
  11. LIDOCAINE. [Concomitant]
     Active Substance: LIDOCAINE
  12. LOPERAMIDE HYDROCHLORIDE. [Concomitant]
     Active Substance: LOPERAMIDE HYDROCHLORIDE
  13. LORAZEPAM. [Concomitant]
     Active Substance: LORAZEPAM
  14. BENADRYL [Concomitant]
     Active Substance: DIPHENHYDRAMINE HYDROCHLORIDE
  15. DONEPEZIL HYDROCHLORIDE. [Concomitant]
     Active Substance: DONEPEZIL HYDROCHLORIDE
  16. TAMSULOSIN [Concomitant]
     Active Substance: TAMSULOSIN

REACTIONS (5)
  - Nausea [Unknown]
  - Intestinal perforation [Fatal]
  - Dehydration [Unknown]
  - Vomiting [Unknown]
  - Abdominal pain [Fatal]

NARRATIVE: CASE EVENT DATE: 20140806
